FAERS Safety Report 5383454-6 (Version None)
Quarter: 2007Q3

REPORT INFORMATION
  Report Type: 
  Country: None (occurrence: None)
  Receive Date: 20070710
  Receipt Date: 20070629
  Transmission Date: 20080115
  Serious: Yes (Hospitalization)
  Sender: FDA-Public Use
  Company Number: CN-BOEHRINGER INGELHEIM PHARMACEUTICALS, INC.-2007-DE-03883GD

PATIENT
  Sex: Female

DRUGS (1)
  1. CLONIDINE [Suspect]
     Indication: MALIGNANT HYPERTENSION
     Route: 048

REACTIONS (1)
  - LABILE HYPERTENSION [None]
